FAERS Safety Report 11877860 (Version 5)
Quarter: 2016Q3

REPORT INFORMATION
  Report Type: Report from Study
  Country: GB (occurrence: GB)
  Receive Date: 20151230
  Receipt Date: 20160708
  Transmission Date: 20161109
  Serious: Yes (Death, Hospitalization)
  Sender: FDA-Public Use
  Company Number: GB-ROCHE-1501874

PATIENT
  Sex: Female
  Weight: 64 kg

DRUGS (3)
  1. LOPERAMIDE [Concomitant]
     Active Substance: LOPERAMIDE
     Dosage: PRN
     Route: 065
     Dates: start: 20140922, end: 20141217
  2. METOCLOPRAMIDE. [Concomitant]
     Active Substance: METOCLOPRAMIDE
     Dosage: PRN
     Route: 065
     Dates: start: 20140922, end: 20141217
  3. BEVACIZUMAB [Suspect]
     Active Substance: BEVACIZUMAB
     Indication: COLORECTAL ADENOCARCINOMA
     Dosage: (7.5 MG/KG)  LAST DOSE PRIOR TO THE EVENT: 24/NOV/2014. THERAPY WAS DECIDED TO DISCONTINUE ON 02 DEC
     Route: 042
     Dates: start: 20141006, end: 20141124

REACTIONS (3)
  - Rectal haemorrhage [Not Recovered/Not Resolved]
  - Diarrhoea haemorrhagic [Not Recovered/Not Resolved]
  - Thrombosis [Fatal]

NARRATIVE: CASE EVENT DATE: 20141129
